FAERS Safety Report 6006219-0 (Version None)
Quarter: 2008Q4

REPORT INFORMATION
  Report Type: 
  Country: None (occurrence: None)
  Receive Date: 20081216
  Receipt Date: 20081216
  Transmission Date: 20090506
  Serious: Yes (Hospitalization)
  Sender: FDA-Public Use
  Company Number: None

PATIENT
  Age: 83 Year
  Sex: Female

DRUGS (1)
  1. PHENERGAN HCL [Suspect]
     Indication: NAUSEA
     Dosage: 12.5 MG FIRST DOSE IV
     Route: 042
     Dates: start: 20080720, end: 20080720

REACTIONS (4)
  - DYSPNOEA [None]
  - HALLUCINATION [None]
  - HYPOTENSION [None]
  - OXYGEN SATURATION DECREASED [None]
